FAERS Safety Report 10573981 (Version 6)
Quarter: 2014Q4

REPORT INFORMATION
  Report Type: Report from Study
  Country: GB (occurrence: GB)
  Receive Date: 20141110
  Receipt Date: 20141222
  Transmission Date: 20150529
  Serious: Yes (Life-Threatening, Hospitalization, Other)
  Sender: FDA-Public Use
  Company Number: GB-GLAXOSMITHKLINE-GB2014003638

PATIENT

DRUGS (7)
  1. SERTRALINE [Suspect]
     Active Substance: SERTRALINE HYDROCHLORIDE
     Indication: INTENTIONAL OVERDOSE
     Dosage: UNKNOWN U ONE
     Route: 048
     Dates: start: 20141027, end: 20141027
  2. LAMOTRIGINE. [Suspect]
     Active Substance: LAMOTRIGINE
     Dosage: UNKNOWN U ONE
     Route: 048
     Dates: start: 20141027, end: 20141027
  3. POLYPHARMACY [Suspect]
     Active Substance: UNSPECIFIED INGREDIENT
     Dosage: UNKNOWN U ONE
     Route: 048
     Dates: start: 20141027, end: 20141027
  4. TIOTROPIUM [Suspect]
     Active Substance: TIOTROPIUM
     Indication: CHRONIC OBSTRUCTIVE PULMONARY DISEASE
     Dosage: 18 UG, QD
     Route: 055
     Dates: start: 20140909
  5. SYMBICORT [Concomitant]
     Active Substance: BUDESONIDE\FORMOTEROL FUMARATE DIHYDRATE
     Indication: CHRONIC OBSTRUCTIVE PULMONARY DISEASE
     Dosage: 400/12 004 BID
     Route: 055
     Dates: end: 20140909
  6. SPIRIVA [Concomitant]
     Active Substance: TIOTROPIUM BROMIDE MONOHYDRATE
     Indication: CHRONIC OBSTRUCTIVE PULMONARY DISEASE
     Dosage: 18 004 OD
     Route: 055
     Dates: end: 20140909
  7. BUDESONIDE + FORMOTEROL [Suspect]
     Active Substance: BUDESONIDE\FORMOTEROL
     Indication: CHRONIC OBSTRUCTIVE PULMONARY DISEASE
     Dosage: 400/12 UG BID
     Route: 055
     Dates: start: 20140909

REACTIONS (6)
  - Respiratory failure [Recovered/Resolved]
  - Depression [Recovered/Resolved with Sequelae]
  - Pneumonia [Recovered/Resolved]
  - Fall [Recovered/Resolved]
  - Intentional overdose [Recovered/Resolved]
  - Cellulitis [Recovered/Resolved]

NARRATIVE: CASE EVENT DATE: 20140925
